FAERS Safety Report 13364279 (Version 1)
Quarter: 2017Q1

REPORT INFORMATION
  Report Type: Spontaneous
  Country: US (occurrence: US)
  Receive Date: 20170323
  Receipt Date: 20170323
  Transmission Date: 20170429
  Serious: Yes (Other)
  Sender: FDA-Public Use
  Company Number: US-IMPAX LABORATORIES, INC-2017-IPXL-00677

PATIENT
  Age: 66 Year
  Sex: Male

DRUGS (4)
  1. CARBIDOPA-LEVODOPA ODT [Suspect]
     Active Substance: CARBIDOPA\LEVODOPA
     Indication: PRODUCT USED FOR UNKNOWN INDICATION
     Dosage: UNK
     Route: 065
  2. CARBIDOPA-LEVODOPA ER [Suspect]
     Active Substance: CARBIDOPA\LEVODOPA
     Indication: PRODUCT USED FOR UNKNOWN INDICATION
     Dosage: UNK
     Route: 065
  3. CARBIDOPA-LEVODOPA ODT [Suspect]
     Active Substance: CARBIDOPA\LEVODOPA
     Dosage: UNK; DECREASED DOSE
     Route: 065
  4. ENTACAPONE. [Suspect]
     Active Substance: ENTACAPONE
     Indication: PRODUCT USED FOR UNKNOWN INDICATION
     Dosage: UNK
     Route: 065

REACTIONS (10)
  - Adjustment disorder with mixed disturbance of emotion and conduct [Recovering/Resolving]
  - Deep brain stimulation [Unknown]
  - Dyskinesia [Unknown]
  - Parkinson^s disease [Unknown]
  - Tremor [Unknown]
  - Stress [Unknown]
  - Cognitive disorder [Recovering/Resolving]
  - Road traffic accident [Unknown]
  - Alcoholism [Recovering/Resolving]
  - Bradykinesia [Unknown]
